FAERS Safety Report 8036652-7 (Version None)
Quarter: 2012Q1

REPORT INFORMATION
  Report Type: 
  Country: None (occurrence: None)
  Receive Date: 20120111
  Receipt Date: 20120104
  Transmission Date: 20120608
  Serious: Yes (Other)
  Sender: FDA-Public Use
  Company Number: CH-JNJFOC-20111209114

PATIENT
  Age: 51 Year
  Sex: Male

DRUGS (2)
  1. REMICADE [Suspect]
     Route: 042
     Dates: start: 20090909
  2. REMICADE [Suspect]
     Indication: CROHN'S DISEASE
     Dosage: 18TH INFUSION
     Route: 042
     Dates: start: 20111201

REACTIONS (1)
  - DEAFNESS NEUROSENSORY [None]
